FAERS Safety Report 9238824 (Version 1)
Quarter: 2013Q1

REPORT INFORMATION
  Report Type: Spontaneous
  Country: US (occurrence: None)
  Receive Date: 20121113
  Receipt Date: 20121113
  Transmission Date: 20140127
  Serious: Yes (Other)
  Sender: FDA-Public Use
  Company Number: PHEH2012US003200

PATIENT
  Age: 29 Year
  Sex: Female

DRUGS (1)
  1. TRILEPTAL (OXCARBAZEPINE) UNKNOWN [Suspect]
     Dosage: 600 MG IN THE MORNING AND 600 MG IN THE EVENING

REACTIONS (8)
  - Blood pressure increased [None]
  - Dizziness [None]
  - Hypoaesthesia [None]
  - Hypoaesthesia oral [None]
  - Cold sweat [None]
  - Hot flush [None]
  - Feeling abnormal [None]
  - Nausea [None]
